FAERS Safety Report 24080789 (Version 6)
Quarter: 2025Q2

REPORT INFORMATION
  Report Type: Spontaneous
  Country: AT (occurrence: AT)
  Receive Date: 20240711
  Receipt Date: 20250507
  Transmission Date: 20250716
  Serious: Yes (Other)
  Sender: MYLAN
  Company Number: AT-STADA-01262402

PATIENT
  Age: 60 Year
  Sex: Female
  Weight: 80 kg

DRUGS (60)
  1. LENALIDOMIDE [Suspect]
     Active Substance: LENALIDOMIDE
     Indication: Diffuse large B-cell lymphoma
     Dosage: 25 MILLIGRAM, FREQUENCY: QD
     Route: 048
     Dates: start: 20230201, end: 20230523
  2. LENALIDOMIDE [Suspect]
     Active Substance: LENALIDOMIDE
     Dosage: 25 MILLIGRAM, FREQUENCY: QD
     Dates: start: 20230201, end: 20230523
  3. LENALIDOMIDE [Suspect]
     Active Substance: LENALIDOMIDE
     Dosage: 25 MILLIGRAM, FREQUENCY: QD
     Dates: start: 20230201, end: 20230523
  4. LENALIDOMIDE [Suspect]
     Active Substance: LENALIDOMIDE
     Dosage: 25 MILLIGRAM, FREQUENCY: QD
     Route: 048
     Dates: start: 20230201, end: 20230523
  5. LENALIDOMIDE [Suspect]
     Active Substance: LENALIDOMIDE
     Route: 065
  6. LENALIDOMIDE [Suspect]
     Active Substance: LENALIDOMIDE
  7. LENALIDOMIDE [Suspect]
     Active Substance: LENALIDOMIDE
  8. LENALIDOMIDE [Suspect]
     Active Substance: LENALIDOMIDE
     Route: 065
  9. BENDAMUSTINE [Suspect]
     Active Substance: BENDAMUSTINE
     Indication: Diffuse large B-cell lymphoma
     Dates: start: 20231026, end: 20231027
  10. BENDAMUSTINE [Suspect]
     Active Substance: BENDAMUSTINE
     Route: 065
     Dates: start: 20231026, end: 20231027
  11. BENDAMUSTINE [Suspect]
     Active Substance: BENDAMUSTINE
     Route: 065
     Dates: start: 20231026, end: 20231027
  12. BENDAMUSTINE [Suspect]
     Active Substance: BENDAMUSTINE
     Dates: start: 20231026, end: 20231027
  13. CYCLOPHOSPHAMIDE [Suspect]
     Active Substance: CYCLOPHOSPHAMIDE
     Indication: Diffuse large B-cell lymphoma
     Dates: start: 20230201, end: 20230517
  14. CYCLOPHOSPHAMIDE [Suspect]
     Active Substance: CYCLOPHOSPHAMIDE
     Dates: start: 20230201, end: 20230517
  15. CYCLOPHOSPHAMIDE [Suspect]
     Active Substance: CYCLOPHOSPHAMIDE
     Route: 042
     Dates: start: 20230201, end: 20230517
  16. CYCLOPHOSPHAMIDE [Suspect]
     Active Substance: CYCLOPHOSPHAMIDE
     Route: 042
     Dates: start: 20230201, end: 20230517
  17. CYCLOPHOSPHAMIDE [Suspect]
     Active Substance: CYCLOPHOSPHAMIDE
  18. CYCLOPHOSPHAMIDE [Suspect]
     Active Substance: CYCLOPHOSPHAMIDE
  19. CYCLOPHOSPHAMIDE [Suspect]
     Active Substance: CYCLOPHOSPHAMIDE
     Route: 042
  20. CYCLOPHOSPHAMIDE [Suspect]
     Active Substance: CYCLOPHOSPHAMIDE
     Route: 042
  21. PREDNISOLONE [Suspect]
     Active Substance: PREDNISOLONE
     Indication: Diffuse large B-cell lymphoma
     Dates: start: 20230201, end: 20230517
  22. PREDNISOLONE [Suspect]
     Active Substance: PREDNISOLONE
     Route: 048
     Dates: start: 20230201, end: 20230517
  23. PREDNISOLONE [Suspect]
     Active Substance: PREDNISOLONE
     Route: 048
     Dates: start: 20230201, end: 20230517
  24. PREDNISOLONE [Suspect]
     Active Substance: PREDNISOLONE
     Dates: start: 20230201, end: 20230517
  25. RITUXIMAB [Suspect]
     Active Substance: RITUXIMAB
     Indication: Follicular lymphoma
     Route: 042
     Dates: start: 20230201, end: 20230517
  26. RITUXIMAB [Suspect]
     Active Substance: RITUXIMAB
     Indication: Diffuse large B-cell lymphoma
     Dates: start: 20230201, end: 20230517
  27. RITUXIMAB [Suspect]
     Active Substance: RITUXIMAB
     Dates: start: 20230201, end: 20230517
  28. RITUXIMAB [Suspect]
     Active Substance: RITUXIMAB
     Route: 042
     Dates: start: 20230201, end: 20230517
  29. RITUXIMAB [Suspect]
     Active Substance: RITUXIMAB
  30. RITUXIMAB [Suspect]
     Active Substance: RITUXIMAB
  31. RITUXIMAB [Suspect]
     Active Substance: RITUXIMAB
     Route: 042
  32. RITUXIMAB [Suspect]
     Active Substance: RITUXIMAB
     Route: 042
  33. RITUXIMAB [Suspect]
     Active Substance: RITUXIMAB
     Route: 065
  34. RITUXIMAB [Suspect]
     Active Substance: RITUXIMAB
  35. RITUXIMAB [Suspect]
     Active Substance: RITUXIMAB
  36. RITUXIMAB [Suspect]
     Active Substance: RITUXIMAB
     Route: 065
  37. DOXORUBICIN [Suspect]
     Active Substance: DOXORUBICIN
     Indication: Diffuse large B-cell lymphoma
     Dates: start: 20230201, end: 20230517
  38. DOXORUBICIN [Suspect]
     Active Substance: DOXORUBICIN
     Route: 042
     Dates: start: 20230201, end: 20230517
  39. DOXORUBICIN [Suspect]
     Active Substance: DOXORUBICIN
     Route: 042
     Dates: start: 20230201, end: 20230517
  40. DOXORUBICIN [Suspect]
     Active Substance: DOXORUBICIN
     Dates: start: 20230201, end: 20230517
  41. VINCRISTINE [Suspect]
     Active Substance: VINCRISTINE
     Indication: Diffuse large B-cell lymphoma
  42. VINCRISTINE [Suspect]
     Active Substance: VINCRISTINE
  43. VINCRISTINE [Suspect]
     Active Substance: VINCRISTINE
     Route: 042
  44. VINCRISTINE [Suspect]
     Active Substance: VINCRISTINE
     Route: 042
  45. VINCRISTINE [Suspect]
     Active Substance: VINCRISTINE
  46. VINCRISTINE [Suspect]
     Active Substance: VINCRISTINE
  47. VINCRISTINE [Suspect]
     Active Substance: VINCRISTINE
     Route: 042
  48. VINCRISTINE [Suspect]
     Active Substance: VINCRISTINE
     Route: 042
  49. POLATUZUMAB VEDOTIN [Suspect]
     Active Substance: POLATUZUMAB VEDOTIN
     Indication: Diffuse large B-cell lymphoma
  50. POLATUZUMAB VEDOTIN [Suspect]
     Active Substance: POLATUZUMAB VEDOTIN
     Route: 065
  51. POLATUZUMAB VEDOTIN [Suspect]
     Active Substance: POLATUZUMAB VEDOTIN
     Route: 065
  52. POLATUZUMAB VEDOTIN [Suspect]
     Active Substance: POLATUZUMAB VEDOTIN
  53. TAFASITAMAB [Suspect]
     Active Substance: TAFASITAMAB
     Indication: Diffuse large B-cell lymphoma
     Dosage: 1008 MILLIGRAM, QW
     Route: 042
     Dates: start: 20230201, end: 20230517
  54. TAFASITAMAB [Suspect]
     Active Substance: TAFASITAMAB
     Dosage: 1008 MILLIGRAM, QW
     Dates: start: 20230201, end: 20230517
  55. TAFASITAMAB [Suspect]
     Active Substance: TAFASITAMAB
     Dosage: 1008 MILLIGRAM, QW
     Dates: start: 20230201, end: 20230517
  56. TAFASITAMAB [Suspect]
     Active Substance: TAFASITAMAB
     Dosage: 1008 MILLIGRAM, QW
     Route: 042
     Dates: start: 20230201, end: 20230517
  57. TAFASITAMAB [Suspect]
     Active Substance: TAFASITAMAB
     Dosage: 1063 MILLIGRAM, QW
     Route: 042
     Dates: start: 20230531
  58. TAFASITAMAB [Suspect]
     Active Substance: TAFASITAMAB
     Dosage: 1063 MILLIGRAM, QW
     Dates: start: 20230531
  59. TAFASITAMAB [Suspect]
     Active Substance: TAFASITAMAB
     Dosage: 1063 MILLIGRAM, QW
     Dates: start: 20230531
  60. TAFASITAMAB [Suspect]
     Active Substance: TAFASITAMAB
     Dosage: 1063 MILLIGRAM, QW
     Route: 042
     Dates: start: 20230531

REACTIONS (3)
  - Lung adenocarcinoma [Recovered/Resolved]
  - Second primary malignancy [Recovered/Resolved]
  - Disease progression [Unknown]

NARRATIVE: CASE EVENT DATE: 20231010
